FAERS Safety Report 4908855-9 (Version None)
Quarter: 2006Q1

REPORT INFORMATION
  Report Type: 
  Country: None (occurrence: None)
  Receive Date: 20060210
  Receipt Date: 20051207
  Transmission Date: 20060701
  Serious: No
  Sender: FDA-Public Use
  Company Number: US-GLAXOSMITHKLINE-A0584990A

PATIENT
  Age: 42 Year
  Sex: Female

DRUGS (4)
  1. PAXIL CR [Suspect]
     Dosage: 12.5MG PER DAY
     Route: 048
     Dates: start: 20050301, end: 20050301
  2. SYNTHROID [Concomitant]
  3. ATIVAN [Concomitant]
  4. RHINOCORT [Concomitant]

REACTIONS (2)
  - DEREALISATION [None]
  - MALAISE [None]
